FAERS Safety Report 5760035-3 (Version None)
Quarter: 2008Q2

REPORT INFORMATION
  Report Type: 
  Country: None (occurrence: None)
  Receive Date: 20080605
  Receipt Date: 20080527
  Transmission Date: 20081010
  Serious: Yes (Hospitalization, Other)
  Sender: FDA-Public Use
  Company Number: PHHY2008GB07068

PATIENT
  Age: 2 Month
  Sex: Male
  Weight: 1.5 kg

DRUGS (12)
  1. OCTREOTIDE ACETATE [Suspect]
     Dosage: 10 UG
     Route: 065
     Dates: start: 20080211, end: 20080213
  2. OCTREOTIDE ACETATE [Suspect]
     Route: 065
  3. OCTREOTIDE ACETATE [Suspect]
     Dosage: 10 UG, UNK
     Route: 065
     Dates: start: 20080211, end: 20080213
  4. AMPHOTERICIN B [Concomitant]
  5. CASPOFUNGIN ACETATE [Concomitant]
  6. ENOXAPARIN SODIUM [Concomitant]
  7. GENTAMICIN [Concomitant]
  8. LIOTHYRONINE SODIUM [Concomitant]
  9. METRONIDAZOLE HCL [Concomitant]
  10. MIDAZOLAM HYDROCHLORIDE [Concomitant]
  11. MORPHINE [Concomitant]
  12. VANCOMYCIN [Concomitant]

REACTIONS (4)
  - ABDOMINAL DISTENSION [None]
  - HAEMATOCHEZIA [None]
  - INTESTINAL FUNCTIONAL DISORDER [None]
  - NECROTISING COLITIS [None]
